FAERS Safety Report 15201254 (Version 3)
Quarter: 2018Q3

REPORT INFORMATION
  Report Type: Spontaneous
  Country: JP (occurrence: JP)
  Receive Date: 20180726
  Receipt Date: 20180921
  Transmission Date: 20181010
  Serious: Yes (Hospitalization, Other)
  Sender: FDA-Public Use
  Company Number: JP-REGENERON PHARMACEUTICALS, INC.-2018-30654

PATIENT

DRUGS (4)
  1. EYLEA [Suspect]
     Active Substance: AFLIBERCEPT
     Indication: RETINAL VEIN OCCLUSION
     Dosage: 2MG , ONCE, RIGHT EYE
     Route: 031
     Dates: start: 20171117, end: 20171117
  2. CHONDROITIN SULFATE SODIUM [Concomitant]
     Active Substance: CHONDROITIN SULFATE (CHICKEN)
     Indication: DRY EYE
     Dosage: DAILY DOSE THREE TIMES TO FOUR TIMES
     Route: 047
  3. EYLEA [Suspect]
     Active Substance: AFLIBERCEPT
     Dosage: 2MG , ONCE, RIGHT EYE
     Route: 031
     Dates: start: 20171215, end: 20171215
  4. EYLEA [Suspect]
     Active Substance: AFLIBERCEPT
     Dosage: 2MG , ONCE, RIGHT EYE
     Route: 031
     Dates: start: 20180215, end: 20180215

REACTIONS (1)
  - Endophthalmitis [Recovered/Resolved]

NARRATIVE: CASE EVENT DATE: 20180219
